FAERS Safety Report 7651817-1 (Version None)
Quarter: 2011Q3

REPORT INFORMATION
  Report Type: 
  Country: None (occurrence: None)
  Receive Date: 20110803
  Receipt Date: 20110729
  Transmission Date: 20111222
  Serious: Yes (Hospitalization, Other)
  Sender: FDA-Public Use
  Company Number: IN-BRISTOL-MYERS SQUIBB COMPANY-15558380

PATIENT
  Age: 58 Year
  Sex: Male

DRUGS (7)
  1. PREDNISOLONE [Suspect]
     Dosage: TABS; 5MG 23JUN11-CONT
     Dates: start: 20090923
  2. MIXTARD HUMAN 70/30 [Concomitant]
     Dosage: 1DF: 4UNIT
  3. CELLCEPT [Suspect]
     Dosage: 500-750 MG 17FEB11-15MAR11 500 MG ON 16MAR11-08JUN11 250-0-500MG: 09JUN11 TO ONG
     Dates: start: 20101125, end: 20110725
  4. ECOSPRIN [Concomitant]
     Dosage: TABS
  5. FINASTERIDE [Concomitant]
     Dosage: TABS
  6. OMNACORTIL [Concomitant]
     Dosage: TABS
  7. BELATACEPT [Suspect]
     Indication: RENAL TRANSPLANT
     Route: 042
     Dates: start: 20070420

REACTIONS (1)
  - WEIGHT DECREASED [None]
